FAERS Safety Report 18054185 (Version 4)
Quarter: 2022Q4

REPORT INFORMATION
  Report Type: Spontaneous
  Country: US (occurrence: US)
  Receive Date: 20200722
  Receipt Date: 20221012
  Transmission Date: 20230112
  Serious: No
  Sender: FDA-Public Use
  Company Number: US-PFIZER INC-2020278586

PATIENT
  Age: 60 Year
  Sex: Male
  Weight: 65.77 kg

DRUGS (2)
  1. SOMAVERT [Suspect]
     Active Substance: PEGVISOMANT
     Indication: Hormone therapy
     Dosage: THEY ALWAYS GIVE STRONG DOSE BUT THIS ONE IS 5-10 MG, HE IS UNSURE
     Dates: start: 2020
  2. SOMAVERT [Suspect]
     Active Substance: PEGVISOMANT
     Dosage: 10 MG, DAILY
     Dates: start: 2020

REACTIONS (4)
  - Skin disorder [Unknown]
  - Hormone level abnormal [Unknown]
  - Headache [Unknown]
  - Product dose omission issue [Unknown]

NARRATIVE: CASE EVENT DATE: 20200101
